FAERS Safety Report 10760748 (Version 2)
Quarter: 2015Q1

REPORT INFORMATION
  Report Type: Spontaneous
  Country: CA (occurrence: None)
  Receive Date: 20150202
  Receipt Date: 20150206
  Transmission Date: 20150721
  Serious: Yes (Other)
  Sender: FDA-Public Use
  Company Number: 2015FE00071

PATIENT
  Age: 81 Year
  Sex: Male
  Weight: 76 kg

DRUGS (2)
  1. TECTA (PANTOPRAZOLE MAGNESIUM) [Concomitant]
     Active Substance: PANTOPRAZOLE MAGNESIUM
  2. DEGARELIX (DEGARELIX) POWDER AND SOLVENT FOR SOLUTION FOR INJECTION [Suspect]
     Active Substance: DEGARELIX
     Indication: PROSTATE CANCER METASTATIC
     Route: 058
     Dates: start: 20140903

REACTIONS (5)
  - Penile swelling [None]
  - Lymphoedema [None]
  - Testicular swelling [None]
  - Drug ineffective [None]
  - Dysuria [None]

NARRATIVE: CASE EVENT DATE: 20140903
